FAERS Safety Report 7057801-3 (Version None)
Quarter: 2010Q4

REPORT INFORMATION
  Report Type: 
  Country: None (occurrence: None)
  Receive Date: 20101022
  Receipt Date: 20101022
  Transmission Date: 20110411
  Serious: Yes (Death)
  Sender: FDA-Public Use
  Company Number: None

PATIENT
  Age: 11 Day
  Sex: Female
  Weight: 0.88 kg

DRUGS (2)
  1. KETOROLAC TROMETHAMINE [Suspect]
     Indication: OFF LABEL USE
     Dosage: 0.5 MG/KG ONE TIME IV DRIP
     Route: 041
     Dates: start: 20100824, end: 20100824
  2. KETOROLAC TROMETHAMINE [Suspect]
     Indication: PATENT DUCTUS ARTERIOSUS
     Dosage: 0.5 MG/KG ONE TIME IV DRIP
     Route: 041
     Dates: start: 20100824, end: 20100824

REACTIONS (5)
  - ABDOMINAL DISTENSION [None]
  - GASTROINTESTINAL NECROSIS [None]
  - NECROTISING ENTEROCOLITIS NEONATAL [None]
  - OFF LABEL USE [None]
  - RESPIRATORY DISORDER [None]
